FAERS Safety Report 19744554 (Version 1)
Quarter: 2021Q3

REPORT INFORMATION
  Report Type: Spontaneous
  Country: US (occurrence: US)
  Receive Date: 20210823
  Receipt Date: 20210823
  Transmission Date: 20211014
  Serious: No
  Sender: FDA-Public Use
  Company Number: None

PATIENT
  Age: 71 Year
  Sex: Female
  Weight: 70.31 kg

DRUGS (1)
  1. RITUXAN [Suspect]
     Active Substance: RITUXIMAB
     Indication: RHEUMATOID ARTHRITIS
     Dosage: INFUSE 1000MG INTRAVENOUSLY AT DAY 0 AND DAY 14 THEN EVERY 4 MONTHS AS DIRECTED?
     Route: 042

REACTIONS (3)
  - Lung neoplasm malignant [None]
  - COVID-19 [None]
  - Therapy interrupted [None]
